FAERS Safety Report 7413207-6 (Version None)
Quarter: 2011Q2

REPORT INFORMATION
  Report Type: 
  Country: None (occurrence: None)
  Receive Date: 20110413
  Receipt Date: 20110406
  Transmission Date: 20111010
  Serious: Yes (Hospitalization)
  Sender: FDA-Public Use
  Company Number: US-US-EMD SERONO, INC.-7047985

PATIENT
  Sex: Male

DRUGS (1)
  1. REBIF [Suspect]
     Indication: PRODUCT USED FOR UNKNOWN INDICATION
     Route: 058
     Dates: start: 20100709, end: 20110311

REACTIONS (5)
  - DEPRESSION [None]
  - DIZZINESS [None]
  - HEPATIC ENZYME INCREASED [None]
  - NAUSEA [None]
  - SYNCOPE [None]
